FAERS Safety Report 9590376 (Version 1)
Quarter: 2013Q4

REPORT INFORMATION
  Report Type: Spontaneous
  Country: US (occurrence: US)
  Receive Date: 20131003
  Receipt Date: 20131003
  Transmission Date: 20140711
  Serious: No
  Sender: FDA-Public Use
  Company Number: US-AMGEN-USASP2012077135

PATIENT
  Age: 63 Year
  Sex: Female
  Weight: 68.03 kg

DRUGS (12)
  1. ENBREL [Suspect]
     Indication: PSORIATIC ARTHROPATHY
     Dosage: 50 MG, QWK
     Route: 058
  2. CELEBREX [Concomitant]
     Dosage: 50 MG, UNK
  3. PAXIL [Concomitant]
     Dosage: 10 MG, UNK
  4. TYLENOL W/CODEINE NO. 3 [Concomitant]
     Dosage: UNK
  5. ZOLPIDEM [Concomitant]
     Dosage: 10 MG, UNK
  6. LEUCOVORIN CA [Concomitant]
     Dosage: 5 MG, UNK
  7. METHOTREXATE [Concomitant]
     Dosage: 2.5 MG, UNK
  8. GABAPENTIN [Concomitant]
     Dosage: 100 MG, UNK
  9. CARISOPRODOL [Concomitant]
     Dosage: 350 MG, UNK
  10. AMITRIPTYLIN [Concomitant]
     Dosage: 10 MG, UNK
  11. FISH OIL [Concomitant]
     Dosage: UNK
  12. CALCIUM [Concomitant]
     Dosage: 500 UNK, UNK

REACTIONS (1)
  - Nausea [Recovering/Resolving]
